FAERS Safety Report 8432861-3 (Version None)
Quarter: 2012Q2

REPORT INFORMATION
  Report Type: 
  Country: None (occurrence: None)
  Receive Date: 20120323
  Receipt Date: 20110711
  Transmission Date: 20120825
  Serious: Yes (Other)
  Sender: FDA-Public Use
  Company Number: 163-21880-11071248

PATIENT
  Age: 72 Year
  Sex: Male
  Weight: 83.9154 kg

DRUGS (17)
  1. VITAMIN E [Concomitant]
  2. ACYCLOVIR [Concomitant]
  3. TORSEMIDE [Concomitant]
  4. NITROSTAT [Concomitant]
  5. XOPENEX [Concomitant]
  6. CYCLOBENZAPRINE HCL [Concomitant]
  7. MAGNESIUM OXIDE (MAGNESIUM OXIDE) [Concomitant]
  8. REVLIMID [Suspect]
     Indication: MULTIPLE MYELOMA
     Dosage: 20 MG, DAILY X 21 DAYS, PO
     Route: 048
     Dates: start: 20090107
  9. OXYGEN (OXYGEN) [Concomitant]
  10. RANITIDINE HYDROCHLORIDE [Concomitant]
  11. DEXAMETHASONE [Concomitant]
  12. JANUVIA [Concomitant]
  13. LOSARTAN POTASSIUM [Concomitant]
  14. PLAVIX [Concomitant]
  15. ASPIRIN [Concomitant]
  16. POTASSIUM CHLORIDE [Concomitant]
  17. METOLAZONE [Concomitant]

REACTIONS (1)
  - MUSCLE SPASMS [None]
